FAERS Safety Report 24050422 (Version 1)
Quarter: 2024Q3

REPORT INFORMATION
  Report Type: Report from Study
  Country: US (occurrence: None)
  Receive Date: 20240704
  Receipt Date: 20240704
  Transmission Date: 20241017
  Serious: Yes (Hospitalization)
  Sender: ASTRAZENECA
  Company Number: 2024A148012

PATIENT
  Age: 59 Year
  Sex: Female
  Weight: 60.3 kg

DRUGS (1)
  1. TRUQAP [Suspect]
     Active Substance: CAPIVASERTIB
     Route: 048

REACTIONS (2)
  - Seizure [Recovering/Resolving]
  - Coma [Recovering/Resolving]
